FAERS Safety Report 6301958-6 (Version None)
Quarter: 2009Q3

REPORT INFORMATION
  Report Type: 
  Country: None (occurrence: None)
  Receive Date: 20090805
  Receipt Date: 20090727
  Transmission Date: 20100115
  Serious: Yes (Life-Threatening, Hospitalization)
  Sender: FDA-Public Use
  Company Number: ADR11342009

PATIENT
  Age: 66 Year
  Sex: Female

DRUGS (8)
  1. ALENDRONIC ACID (MFR: UNKNOWN) [Suspect]
     Indication: OSTEOPOROSIS
     Dosage: 70MG ORAL
     Route: 048
  2. ASPIRIN [Concomitant]
  3. FLUOXETINE [Concomitant]
  4. GABAPENTIN [Concomitant]
  5. OMEPRAZOLE [Concomitant]
  6. SIMVASTATIN [Concomitant]
  7. LEVOTHYROXINE SODIUM [Concomitant]
  8. TRAMADOL [Concomitant]

REACTIONS (1)
  - OESOPHAGEAL ADENOCARCINOMA [None]
